FAERS Safety Report 20715502 (Version 4)
Quarter: 2022Q4

REPORT INFORMATION
  Report Type: Spontaneous
  Country: US (occurrence: US)
  Receive Date: 20220415
  Receipt Date: 20221006
  Transmission Date: 20230112
  Serious: No
  Sender: FDA-Public Use
  Company Number: US-PFIZER INC-2020075834

PATIENT
  Age: 62 Year
  Sex: Female

DRUGS (2)
  1. IBRANCE [Suspect]
     Active Substance: PALBOCICLIB
     Indication: Breast cancer stage IV
     Dosage: 125 MG, CYCLIC (DAILY FOR 3 WEEKS ON 1 WEEK OFF)
     Route: 048
     Dates: start: 20190710
  2. IBRANCE [Suspect]
     Active Substance: PALBOCICLIB
     Dosage: 100 MG, CYCLIC (DAILY FOR 21 DAYS THEN 7 DAYS OFF EVERY 28 DAYS)
     Route: 048

REACTIONS (3)
  - Intentional dose omission [Unknown]
  - Product prescribing error [Unknown]
  - Cytology abnormal [Unknown]
